FAERS Safety Report 23661450 (Version 1)
Quarter: 2024Q1

REPORT INFORMATION
  Report Type: Spontaneous
  Country: FR (occurrence: FR)
  Receive Date: 20240322
  Receipt Date: 20240322
  Transmission Date: 20240410
  Serious: Yes (Hospitalization, Other)
  Sender: FDA-Public Use
  Company Number: None

PATIENT
  Age: 39 Year
  Sex: Male

DRUGS (13)
  1. VALACYCLOVIR HYDROCHLORIDE [Suspect]
     Active Substance: VALACYCLOVIR HYDROCHLORIDE
     Indication: Antiviral prophylaxis
     Dosage: 1000 MG, QD
     Route: 048
     Dates: start: 20240227, end: 20240229
  2. OXALIPLATIN [Suspect]
     Active Substance: OXALIPLATIN
     Indication: Angiocentric lymphoma
     Dosage: 235 MG, TOTAL
     Route: 042
     Dates: start: 20240228, end: 20240228
  3. DEXAMETHASONE [Suspect]
     Active Substance: DEXAMETHASONE
     Indication: Angiocentric lymphoma
     Dosage: 40 MG, QD
     Route: 048
     Dates: start: 20240227, end: 20240228
  4. IVERMECTIN [Suspect]
     Active Substance: IVERMECTIN
     Indication: Parasitic infection prophylaxis
     Dosage: 12 MG, TOTAL
     Route: 048
     Dates: start: 20240226, end: 20240226
  5. ALLOPURINOL [Suspect]
     Active Substance: ALLOPURINOL
     Indication: Cytokine release syndrome
     Dosage: 300 MG, QD
     Route: 048
     Dates: start: 20240223, end: 20240301
  6. METHOTREXATE [Suspect]
     Active Substance: METHOTREXATE
     Indication: Angiocentric lymphoma
     Dosage: 4100 MG, TOTAL
     Route: 042
     Dates: start: 20240227, end: 20240227
  7. ONCASPAR [Suspect]
     Active Substance: PEGASPARGASE
     Indication: Angiocentric lymphoma
     Dosage: 3600 IU, TOTAL
     Route: 042
     Dates: start: 20240228, end: 20240228
  8. ATOVAQUONE [Suspect]
     Active Substance: ATOVAQUONE
     Indication: Antifungal prophylaxis
     Dosage: 1500 MG, QD
     Route: 048
     Dates: start: 20240227, end: 20240229
  9. VIREAD [Suspect]
     Active Substance: TENOFOVIR DISOPROXIL FUMARATE
     Indication: Hepatitis B virus test positive
     Dosage: 245 MG, QD
     Route: 048
     Dates: start: 20240226, end: 20240301
  10. ONDANSETRON [Concomitant]
     Active Substance: ONDANSETRON
     Dosage: 16 MG, QD
     Route: 042
     Dates: start: 20240227
  11. FOLIC ACID [Concomitant]
     Active Substance: FOLIC ACID
     Dosage: 5 MG, QD
     Route: 048
     Dates: start: 20240227
  12. LOVENOX [Concomitant]
     Active Substance: ENOXAPARIN SODIUM
     Dosage: 1 DF, QD
     Route: 058
     Dates: start: 20240226
  13. GEMCITABINE [Concomitant]
     Active Substance: GEMCITABINE
     Dosage: 820 MG, TOTAL
     Route: 042
     Dates: start: 20240227, end: 20240227

REACTIONS (1)
  - Hepatic cytolysis [Recovered/Resolved]

NARRATIVE: CASE EVENT DATE: 20240229
